FAERS Safety Report 22808519 (Version 3)
Quarter: 2023Q4

REPORT INFORMATION
  Report Type: Spontaneous
  Country: US (occurrence: US)
  Receive Date: 20230810
  Receipt Date: 20231016
  Transmission Date: 20240110
  Serious: Yes (Other)
  Sender: FDA-Public Use
  Company Number: US-GSKCCFUS-Case-01767066_AE-99292

PATIENT
  Sex: Male

DRUGS (1)
  1. TRELEGY ELLIPTA [Suspect]
     Active Substance: FLUTICASONE FUROATE\UMECLIDINIUM BROMIDE\VILANTEROL TRIFENATATE
     Indication: Chronic obstructive pulmonary disease
     Dosage: 1 PUFF(S), QD 100/62.5/25 MCG FOR 3 MONTHS
     Route: 055
     Dates: start: 2023, end: 20230810

REACTIONS (10)
  - Cataract [Unknown]
  - Epistaxis [Unknown]
  - Hypertension [Unknown]
  - Vision blurred [Unknown]
  - Dysphonia [Unknown]
  - Pain in extremity [Unknown]
  - Arthralgia [Unknown]
  - Rhinorrhoea [Unknown]
  - Asthma [Unknown]
  - Drug ineffective [Unknown]
